FAERS Safety Report 4391076-9 (Version None)
Quarter: 2004Q3

REPORT INFORMATION
  Report Type: 
  Country: None (occurrence: None)
  Receive Date: 20040701
  Receipt Date: 20040701
  Transmission Date: 20050211
  Serious: Yes (Other)
  Sender: FDA-Public Use
  Company Number: None

PATIENT
  Sex: Female

DRUGS (3)
  1. OXYCODONE HCL [Suspect]
     Indication: ABDOMINAL PAIN
     Dosage: 80 MG PO BID
     Route: 048
     Dates: start: 20040426, end: 20040626
  2. OXYCODONE HCL [Suspect]
     Indication: TUBEROUS SCLEROSIS
     Dosage: 80 MG PO BID
     Route: 048
     Dates: start: 20040426, end: 20040626
  3. OXY IR [Concomitant]

REACTIONS (2)
  - DRUG EFFECT DECREASED [None]
  - PHARMACEUTICAL PRODUCT COMPLAINT [None]
